FAERS Safety Report 14704846 (Version 4)
Quarter: 2018Q2

REPORT INFORMATION
  Report Type: Spontaneous
  Country: US (occurrence: US)
  Receive Date: 20180402
  Receipt Date: 20180422
  Transmission Date: 20180711
  Serious: Yes (Hospitalization)
  Sender: FDA-Public Use
  Company Number: US-APOTEX-2018AP008953

PATIENT
  Sex: Male

DRUGS (3)
  1. PAXIL [Suspect]
     Active Substance: PAROXETINE HYDROCHLORIDE
     Dosage: 20 MG, UNK
     Route: 064
  2. PAXIL [Suspect]
     Active Substance: PAROXETINE HYDROCHLORIDE
     Dosage: 25 MG, UNK
     Route: 064
  3. PAXIL CR [Suspect]
     Active Substance: PAROXETINE HYDROCHLORIDE
     Dosage: 25 MG, QD
     Route: 064

REACTIONS (11)
  - Arnold-Chiari malformation [Unknown]
  - Spina bifida [Unknown]
  - Congenital hydronephrosis [Unknown]
  - Congenital heart valve disorder [Unknown]
  - Sepsis neonatal [Unknown]
  - Neonatal respiratory distress [Unknown]
  - Foetal exposure during pregnancy [Unknown]
  - Neurogenic bladder [Unknown]
  - Meningomyelocele [Unknown]
  - Meningocele [Unknown]
  - Congenital hydrocephalus [Unknown]
